FAERS Safety Report 12427338 (Version 1)
Quarter: 2016Q2

REPORT INFORMATION
  Report Type: Spontaneous
  Country: BR (occurrence: BR)
  Receive Date: 20160602
  Receipt Date: 20160602
  Transmission Date: 20160815
  Serious: Yes (Other)
  Sender: FDA-Public Use
  Company Number: BR-AMGEN-BRASP2012006316

PATIENT
  Age: 71 Year
  Sex: Male
  Weight: 72 kg

DRUGS (12)
  1. CALTREN [Concomitant]
     Active Substance: NITRENDIPINE
     Dosage: (STRENGTH 10 MG), 1X/DAY
  2. SOMALGIN [Concomitant]
     Active Substance: ASPIRIN\DIHYDROXYALUMINUM AMINOACETATE ANHYDROUS\MAGNESIUM CARBONATE
     Dosage: UNK
  3. NITRENDIPINE [Concomitant]
     Active Substance: NITRENDIPINE
     Dosage: (STRENGTH 10 MG), 1X/DAY
  4. GLIFAGE [Concomitant]
     Active Substance: METFORMIN HYDROCHLORIDE
     Indication: GLUCOSE TOLERANCE IMPAIRED
     Dosage: UNK
  5. GLIFAGE [Concomitant]
     Active Substance: METFORMIN HYDROCHLORIDE
     Dosage: (STRENGTH 500 MG), 1X/DAY
  6. SOMALGIN [Concomitant]
     Active Substance: ASPIRIN\DIHYDROXYALUMINUM AMINOACETATE ANHYDROUS\MAGNESIUM CARBONATE
     Dosage: UNK
  7. ESOMEPRAZOLE MAGNESIUM. [Concomitant]
     Active Substance: ESOMEPRAZOLE MAGNESIUM
     Indication: GASTRIC ULCER
     Dosage: UNK
  8. CLOPIDOGREL BISULFATE. [Concomitant]
     Active Substance: CLOPIDOGREL BISULFATE
     Dosage: (STRENGTH 75 MG), 1X/DAY
  9. ESOMEPRAZOLE MAGNESIUM. [Concomitant]
     Active Substance: ESOMEPRAZOLE MAGNESIUM
     Indication: GASTRIC ULCER
     Dosage: UNK
  10. CALTREN [Concomitant]
     Active Substance: NITRENDIPINE
     Indication: HYPERTENSION
     Dosage: 10 MG, UNK
  11. ENBREL [Suspect]
     Active Substance: ETANERCEPT
     Indication: PSORIASIS
     Dosage: 50 MG, 1X/WEEK
     Route: 058
     Dates: start: 201009
  12. ENBREL [Suspect]
     Active Substance: ETANERCEPT
     Dosage: 50 MG, 1X/WEEK
     Route: 058
     Dates: start: 201201, end: 201403

REACTIONS (3)
  - Drug ineffective [Not Recovered/Not Resolved]
  - Stress [Unknown]
  - Injection site pain [Unknown]

NARRATIVE: CASE EVENT DATE: 201202
